FAERS Safety Report 16949893 (Version 1)
Quarter: 2019Q4

REPORT INFORMATION
  Report Type: Spontaneous
  Country: TR (occurrence: TR)
  Receive Date: 20191023
  Receipt Date: 20191023
  Transmission Date: 20200122
  Serious: Yes (Disabling, Other)
  Sender: FDA-Public Use
  Company Number: TR-TEVA-2019-TR-1127275

PATIENT
  Sex: Female

DRUGS (2)
  1. ZORETANIN [Suspect]
     Active Substance: ISOTRETINOIN
     Route: 048
     Dates: start: 20181128, end: 20190103
  2. ROACCUTANE [Suspect]
     Active Substance: ISOTRETINOIN
     Route: 048
     Dates: start: 20190103, end: 20190218

REACTIONS (2)
  - Sacroiliitis [Recovered/Resolved with Sequelae]
  - Acne fulminans [Recovered/Resolved with Sequelae]

NARRATIVE: CASE EVENT DATE: 201902
